FAERS Safety Report 4758146-4 (Version None)
Quarter: 2005Q3

REPORT INFORMATION
  Report Type: 
  Country: None (occurrence: None)
  Receive Date: 20050829
  Receipt Date: 20050818
  Transmission Date: 20060218
  Serious: Yes (Hospitalization)
  Sender: FDA-Public Use
  Company Number: 2005-08-1428

PATIENT
  Age: 51 Year
  Sex: Female
  Weight: 47 kg

DRUGS (2)
  1. CELESTAMINE TAB [Suspect]
     Indication: COUGH
     Dosage: ORAL
     Route: 048
     Dates: start: 20050715
  2. ALLELOCK (OLOPATADINE HCL) TABLETS [Concomitant]
     Indication: COUGH
     Dates: start: 20050715

REACTIONS (5)
  - DRUG ERUPTION [None]
  - ERYTHEMA OF EYELID [None]
  - EYELID OEDEMA [None]
  - NASAL CONGESTION [None]
  - SKIN TEST POSITIVE [None]
